FAERS Safety Report 8970167 (Version 1)
Quarter: 2012Q4

REPORT INFORMATION
  Report Type: Report from Study
  Country: DE (occurrence: DE)
  Receive Date: 20121218
  Receipt Date: 20121218
  Transmission Date: 20130627
  Serious: Yes (Hospitalization, Disabling, Other)
  Sender: FDA-Public Use
  Company Number: DE-BAXTER-2012BAX026911

PATIENT
  Age: 32 Year
  Sex: Female
  Weight: 95 kg

DRUGS (3)
  1. ENDOXAN 1G [Suspect]
     Indication: BREAST CANCER
     Route: 042
     Dates: start: 20081117
  2. BEVACIZUMAB [Suspect]
     Indication: BREAST CANCER
     Route: 042
     Dates: start: 20081117, end: 20090119
  3. EPIRUBICIN [Suspect]
     Indication: BREAST CANCER
     Route: 042
     Dates: start: 20081117

REACTIONS (2)
  - Device related infection [Recovering/Resolving]
  - Febrile neutropenia [Recovered/Resolved]
